FAERS Safety Report 7899274-4 (Version None)
Quarter: 2011Q4

REPORT INFORMATION
  Report Type: 
  Country: None (occurrence: None)
  Receive Date: 20111107
  Receipt Date: 20110912
  Transmission Date: 20120403
  Serious: No
  Sender: FDA-Public Use
  Company Number: US-AMGEN-USASP2011046590

PATIENT
  Age: 49 Year
  Sex: Male

DRUGS (4)
  1. ENBREL [Suspect]
     Indication: PSORIATIC ARTHROPATHY
  2. ENBREL [Suspect]
     Indication: RHEUMATOID ARTHRITIS
     Dosage: 50 MG, QWK
     Dates: start: 20110601
  3. ENBREL [Suspect]
     Indication: PSORIASIS
  4. TREXALL [Concomitant]
     Dosage: 20 MG, UNK
     Dates: start: 20090101

REACTIONS (8)
  - LATEX ALLERGY [None]
  - INJECTION SITE WARMTH [None]
  - INJECTION SITE ERYTHEMA [None]
  - HYPOACUSIS [None]
  - INJECTION SITE MASS [None]
  - INJECTION SITE URTICARIA [None]
  - NERVOUSNESS [None]
  - INJECTION SITE HAEMATOMA [None]
